FAERS Safety Report 5502715-0 (Version None)
Quarter: 2007Q4

REPORT INFORMATION
  Report Type: 
  Country: None (occurrence: None)
  Receive Date: 20071031
  Receipt Date: 20071023
  Transmission Date: 20080405
  Serious: Yes (Life-Threatening, Hospitalization)
  Sender: FDA-Public Use
  Company Number: BG-NOVOPROD-268917

PATIENT
  Age: 29 Year
  Sex: Female

DRUGS (2)
  1. LEVEMIR [Suspect]
     Dosage: 8 IU, IN THE EVENING
     Dates: start: 20060401
  2. NOVORAPID [Concomitant]
     Dosage: 4IU+4IU+4IU
     Route: 058
     Dates: start: 20060101

REACTIONS (1)
  - INTENTIONAL OVERDOSE [None]
